FAERS Safety Report 7571355-4 (Version None)
Quarter: 2011Q2

REPORT INFORMATION
  Report Type: 
  Country: None (occurrence: None)
  Receive Date: 20110624
  Receipt Date: 20110621
  Transmission Date: 20111010
  Serious: Yes (Hospitalization)
  Sender: FDA-Public Use
  Company Number: B0727419A

PATIENT
  Sex: Female

DRUGS (18)
  1. ZOVIRAX [Suspect]
     Indication: PRODUCT USED FOR UNKNOWN INDICATION
     Route: 042
     Dates: start: 20110524, end: 20110528
  2. STEROGYL [Concomitant]
     Route: 065
  3. VITAMIN B COMPLEX CAP [Concomitant]
     Route: 065
  4. AMOXICILLIN TRIHYDRATE [Suspect]
     Indication: ANTIBIOTIC THERAPY
     Dosage: 3G PER DAY
     Route: 048
     Dates: start: 20110524, end: 20110607
  5. GENTAMICIN [Suspect]
     Indication: ANTIBIOTIC THERAPY
     Route: 048
     Dates: start: 20110525, end: 20110531
  6. FOSAVANCE [Concomitant]
     Dosage: 1UNIT WEEKLY
     Route: 065
  7. BACTRIM DS [Suspect]
     Indication: ANTIBIOTIC THERAPY
     Dosage: 500MG THREE TIMES PER DAY
     Route: 048
     Dates: start: 20110531, end: 20110602
  8. GABACET [Concomitant]
     Route: 065
  9. ACETAMINOPHEN [Concomitant]
     Route: 065
  10. LUTEIN [Concomitant]
     Route: 065
  11. VITAMIN E [Concomitant]
     Route: 065
  12. NEXIUM [Concomitant]
     Dosage: 20MG PER DAY
     Route: 065
  13. FLECAINIDE ACETATE [Concomitant]
     Dosage: 150MG PER DAY
     Route: 065
  14. LITHIUM CARBONATE [Concomitant]
     Route: 065
  15. AUGMENTIN '125' [Suspect]
     Indication: ANTIBIOTIC THERAPY
     Dosage: 2G PER DAY
     Route: 048
     Dates: start: 20110513
  16. IRBESARTAN + HYDROCHLOROTHIAZIDE [Suspect]
     Dosage: 1UNIT PER DAY
     Route: 065
  17. POLYKARAYA [Concomitant]
     Dosage: 1UNIT PER DAY
     Route: 065
  18. LOVAZA [Concomitant]
     Route: 065

REACTIONS (3)
  - CONFUSIONAL STATE [None]
  - AGGRESSION [None]
  - CREATININE RENAL CLEARANCE DECREASED [None]
